FAERS Safety Report 23034839 (Version 2)
Quarter: 2023Q4

REPORT INFORMATION
  Report Type: Spontaneous
  Country: US (occurrence: US)
  Receive Date: 20231005
  Receipt Date: 20231106
  Transmission Date: 20240110
  Serious: No
  Sender: FDA-Public Use
  Company Number: US-PFIZER INC-PV202300163910

PATIENT
  Age: 70 Year
  Sex: Female
  Weight: 77.098 kg

DRUGS (2)
  1. IBRANCE [Suspect]
     Active Substance: PALBOCICLIB
     Indication: Ovarian cancer
     Dosage: 125 MG, DAILY
     Dates: start: 202307, end: 202308
  2. ANASTROZOLE [Concomitant]
     Active Substance: ANASTROZOLE
     Dosage: UNK
     Dates: start: 202304, end: 202308

REACTIONS (2)
  - Tumour marker increased [Unknown]
  - Off label use [Unknown]

NARRATIVE: CASE EVENT DATE: 20230701
